FAERS Safety Report 19467117 (Version 2)
Quarter: 2021Q3

REPORT INFORMATION
  Report Type: Report from Study
  Country: US (occurrence: US)
  Receive Date: 20210628
  Receipt Date: 20210731
  Transmission Date: 20211014
  Serious: No
  Sender: FDA-Public Use
  Company Number: NVSC2021US133200

PATIENT
  Sex: Female

DRUGS (1)
  1. ENTRESTO [Suspect]
     Active Substance: SACUBITRIL\VALSARTAN
     Indication: PRODUCT USED FOR UNKNOWN INDICATION
     Dosage: 1 DF, BID (24/26 MG)
     Route: 048
     Dates: start: 20210417

REACTIONS (2)
  - Sinus rhythm [Not Recovered/Not Resolved]
  - Product dose omission issue [Not Recovered/Not Resolved]
